FAERS Safety Report 9413767 (Version 1)
Quarter: 2013Q3

REPORT INFORMATION
  Report Type: Spontaneous
  Country: DK (occurrence: DK)
  Receive Date: 20130723
  Receipt Date: 20130723
  Transmission Date: 20140515
  Serious: Yes (Disabling)
  Sender: FDA-Public Use
  Company Number: DK-AMGEN-DNKSP2013050502

PATIENT
  Age: 64 Year
  Sex: 0
  Weight: 75 kg

DRUGS (1)
  1. ARANESP [Suspect]
     Indication: CARCINOID SYNDROME
     Dosage: 60 MUG, UNK
     Dates: start: 20110404, end: 20110704

REACTIONS (2)
  - Venous occlusion [Recovering/Resolving]
  - Vision blurred [Recovered/Resolved]
